FAERS Safety Report 16621310 (Version 1)
Quarter: 2019Q3

REPORT INFORMATION
  Report Type: Spontaneous
  Country: DK (occurrence: DK)
  Receive Date: 20190723
  Receipt Date: 20190723
  Transmission Date: 20191004
  Serious: Yes (Other)
  Sender: FDA-Public Use
  Company Number: PHHY2019DK138245

PATIENT
  Age: 5 Year
  Sex: Female

DRUGS (6)
  1. INFLIXIMAB [Suspect]
     Active Substance: INFLIXIMAB
     Indication: PUSTULAR PSORIASIS
     Dosage: 6.5 MG/KG, TID (2 WEEKS INTERVAL AND THEREAFTER EVERY 4 WEEKS)
     Route: 041
  2. ANAKINRA [Suspect]
     Active Substance: ANAKINRA
     Indication: PUSTULAR PSORIASIS
     Dosage: 4 MG/KG, QD
     Route: 065
  3. ETANERCEPT [Suspect]
     Active Substance: ETANERCEPT
     Indication: PSORIASIS
  4. ETANERCEPT [Suspect]
     Active Substance: ETANERCEPT
     Indication: PUSTULAR PSORIASIS
     Dosage: UNK
     Route: 065
  5. ANAKINRA [Suspect]
     Active Substance: ANAKINRA
     Dosage: 8 MG/KG, QD
     Route: 065
  6. METHOTREXATE. [Suspect]
     Active Substance: METHOTREXATE
     Indication: PUSTULAR PSORIASIS
     Dosage: UNK
     Route: 065

REACTIONS (4)
  - Skin lesion [Unknown]
  - Condition aggravated [Unknown]
  - Anaphylactoid reaction [Unknown]
  - Therapy non-responder [Unknown]
